FAERS Safety Report 18653534 (Version 5)
Quarter: 2021Q1

REPORT INFORMATION
  Report Type: Spontaneous
  Country: US (occurrence: US)
  Receive Date: 20201223
  Receipt Date: 20210210
  Transmission Date: 20210419
  Serious: Yes (Other)
  Sender: FDA-Public Use
  Company Number: US-CELGENEUS-USA-20201205676

PATIENT
  Age: 44 Year
  Sex: Female

DRUGS (1)
  1. ZEPOSIA [Suspect]
     Active Substance: OZANIMOD HYDROCHLORIDE
     Indication: MULTIPLE SCLEROSIS
     Dosage: 0.92 MILLIGRAM
     Route: 048
     Dates: start: 20201105, end: 20210202

REACTIONS (6)
  - Pain [Unknown]
  - Cardiac flutter [Unknown]
  - Chromaturia [Unknown]
  - Abdominal pain [Unknown]
  - Alopecia [Unknown]
  - Extrasystoles [Unknown]

NARRATIVE: CASE EVENT DATE: 20201201
